FAERS Safety Report 9225306 (Version 1)
Quarter: 2013Q2

REPORT INFORMATION
  Report Type: Spontaneous
  Country: US (occurrence: US)
  Receive Date: 20130411
  Receipt Date: 20130411
  Transmission Date: 20140414
  Serious: Yes (Life-Threatening, Hospitalization)
  Sender: FDA-Public Use
  Company Number: US-B.I. PHARMACEUTICALS,INC./RIDGEFIELD-2013-BI-09291BP

PATIENT
  Sex: Male

DRUGS (1)
  1. ATROVENT [Suspect]

REACTIONS (1)
  - Anaphylactic reaction [Recovered/Resolved]
